FAERS Safety Report 23225160 (Version 1)
Quarter: 2023Q4

REPORT INFORMATION
  Report Type: Spontaneous
  Country: BG (occurrence: BG)
  Receive Date: 20231124
  Receipt Date: 20231124
  Transmission Date: 20240110
  Serious: Yes (Life-Threatening, Other)
  Sender: FDA-Public Use
  Company Number: None

PATIENT
  Age: 35 Year
  Sex: Female
  Weight: 49 kg

DRUGS (1)
  1. LEVOFLOXACIN [Suspect]
     Active Substance: LEVOFLOXACIN
     Indication: Haemophilus infection
     Dosage: 500 MILLIGRAM DAILY; 500 MG ONCE DAILY
     Dates: start: 20231026, end: 20231026

REACTIONS (12)
  - Paraesthesia [Recovered/Resolved]
  - Musculoskeletal stiffness [Recovered/Resolved]
  - Swelling [Recovered/Resolved]
  - Dysgeusia [Recovered/Resolved]
  - Hypoaesthesia [Recovered/Resolved]
  - Lip swelling [Recovered/Resolved]
  - Palpitations [Recovered/Resolved]
  - Swelling of eyelid [Recovered/Resolved]
  - Joint stiffness [Recovered/Resolved]
  - Skin burning sensation [Recovered/Resolved]
  - Eyelid irritation [Recovered/Resolved]
  - Pruritus [Recovered/Resolved]

NARRATIVE: CASE EVENT DATE: 20231026
